FAERS Safety Report 4547949-7 (Version None)
Quarter: 2005Q1

REPORT INFORMATION
  Report Type: 
  Country: None (occurrence: None)
  Receive Date: 20050110
  Receipt Date: 20050104
  Transmission Date: 20050727
  Serious: Yes (Hospitalization)
  Sender: FDA-Public Use
  Company Number: US-JNJFOC-20040906249

PATIENT
  Sex: Female

DRUGS (12)
  1. DURAGESIC [Suspect]
     Route: 062
     Dates: start: 20040301
  2. TRAZODONE [Suspect]
     Indication: DRUG USE FOR UNKNOWN INDICATION
     Dates: start: 20040820
  3. AMITRIPTYLINE [Suspect]
     Indication: INSOMNIA
  4. DIAZEPAM [Concomitant]
     Route: 049
  5. VICODIN [Concomitant]
  6. VICODIN [Concomitant]
     Indication: PAIN
  7. DETROL [Concomitant]
     Indication: URINARY INCONTINENCE
  8. ELAVIL [Concomitant]
     Indication: SLEEP DISORDER THERAPY
     Route: 049
  9. TRAZODONE HCL [Concomitant]
     Indication: SLEEP DISORDER THERAPY
     Dosage: ONE HALF TABLET DAILY
     Route: 049
  10. DIAZEPAM [Concomitant]
     Dosage: 5 TO 7.5 MG THREE TIMES A DAY
  11. FLORINEF [Concomitant]
  12. EFFEXOR [Concomitant]

REACTIONS (4)
  - FALL [None]
  - FOOT FRACTURE [None]
  - MEDICATION ERROR [None]
  - PNEUMONIA [None]
